FAERS Safety Report 4286473-6 (Version None)
Quarter: 2004Q1

REPORT INFORMATION
  Report Type: 
  Country: None (occurrence: None)
  Receive Date: 20040205
  Receipt Date: 20040205
  Transmission Date: 20041129
  Serious: Yes (Hospitalization, Disabling)
  Sender: FDA-Public Use
  Company Number: None

PATIENT
  Age: 63 Year
  Sex: Male
  Weight: 102.0593 kg

DRUGS (4)
  1. ZOMETA [Suspect]
     Indication: HYPERCALCAEMIA
     Dosage: 4 MG Q MONTH
     Dates: start: 20021201, end: 20031231
  2. LUPRON [Concomitant]
  3. ZOLADEX [Concomitant]
  4. CASODEX [Concomitant]

REACTIONS (3)
  - ASEPTIC NECROSIS BONE [None]
  - IMPAIRED HEALING [None]
  - POSTOPERATIVE WOUND COMPLICATION [None]
